FAERS Safety Report 20737731 (Version 2)
Quarter: 2022Q2

REPORT INFORMATION
  Report Type: Report from Study
  Country: US (occurrence: US)
  Receive Date: 20220422
  Receipt Date: 20220428
  Transmission Date: 20220721
  Serious: Yes (Death, Other)
  Sender: FDA-Public Use
  Company Number: US-ACADIA PHARMACEUTICALS INC.-ACA-2022-PIM-001354

PATIENT
  Age: 84 Year
  Sex: Male

DRUGS (19)
  1. NUPLAZID [Suspect]
     Active Substance: PIMAVANSERIN TARTRATE
     Indication: Parkinson^s disease psychosis
     Dosage: 34 MILLIGRAM, QD
     Route: 048
     Dates: start: 20220205, end: 20220406
  2. POTASSIUM CHLORIDE [Concomitant]
     Active Substance: POTASSIUM CHLORIDE
  3. SERTRALINE [Concomitant]
     Active Substance: SERTRALINE HYDROCHLORIDE
  4. SUCRALFATE [Concomitant]
     Active Substance: SUCRALFATE
  5. TAMSULOSIN [Concomitant]
     Active Substance: TAMSULOSIN
  6. TESTOSTERONE [Concomitant]
     Active Substance: TESTOSTERONE
  7. TRAMADOL [Concomitant]
     Active Substance: TRAMADOL
  8. ZONISAMIDE [Concomitant]
     Active Substance: ZONISAMIDE
  9. CARBIDOPA\LEVODOPA [Concomitant]
     Active Substance: CARBIDOPA\LEVODOPA
  10. DONEPEZIL [Concomitant]
     Active Substance: DONEPEZIL
  11. HYDROCORTISONE [Concomitant]
     Active Substance: HYDROCORTISONE
  12. ALLOPURINOL [Concomitant]
     Active Substance: ALLOPURINOL
  13. ASPIRIN [Concomitant]
     Active Substance: ASPIRIN
  14. CLONAZEPAM [Concomitant]
     Active Substance: CLONAZEPAM
  15. FAMOTIDINE [Concomitant]
     Active Substance: FAMOTIDINE
  16. FUROSEMIDE [Concomitant]
     Active Substance: FUROSEMIDE
  17. GABAPENTIN [Concomitant]
     Active Substance: GABAPENTIN
  18. HYDROCODONE BITARTRATE AND ACETAMINOPHEN [Concomitant]
     Active Substance: ACETAMINOPHEN\HYDROCODONE BITARTRATE
  19. MULTIVITAMIN IRON [Concomitant]

REACTIONS (1)
  - Aspiration [Fatal]

NARRATIVE: CASE EVENT DATE: 20220406
